FAERS Safety Report 18706439 (Version 1)
Quarter: 2021Q1

REPORT INFORMATION
  Report Type: Spontaneous
  Country: US (occurrence: US)
  Receive Date: 20210105
  Receipt Date: 20210105
  Transmission Date: 20210419
  Serious: Yes (Hospitalization)
  Sender: FDA-Public Use
  Company Number: None

PATIENT
  Age: 31 Year
  Sex: Male
  Weight: 67 kg

DRUGS (2)
  1. BUPROPION (BUPROPION HCL 150MG 24HR TAB, SA) [Suspect]
     Active Substance: BUPROPION HYDROCHLORIDE
     Indication: DEPRESSION
     Route: 048
     Dates: start: 20180809, end: 20200923
  2. BUPROPION (BUPROPION HCL 150MG 24HR TAB, SA) [Suspect]
     Active Substance: BUPROPION HYDROCHLORIDE
     Indication: ANXIETY
     Route: 048
     Dates: start: 20180809, end: 20200923

REACTIONS (1)
  - Seizure [None]

NARRATIVE: CASE EVENT DATE: 20200923
